FAERS Safety Report 7295651-3 (Version None)
Quarter: 2011Q1

REPORT INFORMATION
  Report Type: 
  Country: None (occurrence: None)
  Receive Date: 20110216
  Receipt Date: 20101214
  Transmission Date: 20110831
  Serious: No
  Sender: FDA-Public Use
  Company Number: US-ABBOTT-10P-163-0691259-00

PATIENT
  Sex: Female
  Weight: 63.56 kg

DRUGS (1)
  1. SIMCOR [Suspect]
     Indication: HYPERLIPIDAEMIA

REACTIONS (3)
  - DIARRHOEA [None]
  - NAUSEA [None]
  - HEADACHE [None]
